FAERS Safety Report 4502934-6 (Version None)
Quarter: 2004Q4

REPORT INFORMATION
  Report Type: 
  Country: None (occurrence: None)
  Receive Date: 20041112
  Receipt Date: 20041028
  Transmission Date: 20050328
  Serious: Yes (Death, Hospitalization)
  Sender: FDA-Public Use
  Company Number: 2004-BP-10789EX

PATIENT
  Age: 72 Year
  Sex: Female

DRUGS (17)
  1. DEXAMETHASONE [Suspect]
     Indication: MULTIPLE MYELOMA
     Dosage: CYCLIC: 40 MG/DAY/CYCLE, PO
     Route: 048
     Dates: start: 20021010, end: 20021222
  2. PANTOPRAZOLE (PANTOPRAZOLE) [Concomitant]
  3. MEPROBAMATE [Concomitant]
  4. DARBEPOETIN (DARBEPOETIN ALFA) [Concomitant]
  5. IRBESARTAN [WITH HYDROCHLOROTHIAZIDE] (IRBESARTAN) [Concomitant]
  6. [IRBESARTAN WITH] HYDROCHLOROTHIAZIDE (HYDROCHLOROTHIAZIDE) [Concomitant]
  7. CLONIDINE [Concomitant]
  8. DOCUSATE SODIUM (DOCUSATE SODIUM) [Concomitant]
  9. DAPSONE [Concomitant]
  10. PAROXETINE HCL [Concomitant]
  11. ALLOPURINOL [Concomitant]
  12. FENTANYL [Concomitant]
  13. OXYCODONE (OXYCODONE) [Concomitant]
  14. MULTIVITAMIN (MULTIVITAMINS) [Concomitant]
  15. ASPIRIN [Concomitant]
  16. PAMIDRONATE DISODIUM [Concomitant]
  17. ONDANSETRON HCL [Concomitant]

REACTIONS (13)
  - ANOREXIA [None]
  - CHEST PAIN [None]
  - COUGH [None]
  - CREPITATIONS [None]
  - DYSPNOEA [None]
  - GENERAL PHYSICAL HEALTH DETERIORATION [None]
  - MULTI-ORGAN FAILURE [None]
  - MULTIPLE MYELOMA [None]
  - NAUSEA [None]
  - OEDEMA PERIPHERAL [None]
  - PNEUMONIA [None]
  - RENAL FAILURE [None]
  - SPUTUM DISCOLOURED [None]
